FAERS Safety Report 5252826-2 (Version None)
Quarter: 2007Q1

REPORT INFORMATION
  Report Type: 
  Country: None (occurrence: None)
  Receive Date: 20070227
  Receipt Date: 20070216
  Transmission Date: 20070707
  Serious: Yes (Death)
  Sender: FDA-Public Use
  Company Number: GXKR2007GB01756

PATIENT
  Age: 26 Year

DRUGS (3)
  1. DIAZEPAM [Suspect]
  2. DURAGESIC-100 [Suspect]
     Dosage: 100 UG/HR, UNK, UNKNOWN
  3. METHADONE HCL [Suspect]

REACTIONS (3)
  - INCORRECT ROUTE OF DRUG ADMINISTRATION [None]
  - INTENTIONAL DRUG MISUSE [None]
  - WRONG TECHNIQUE IN DRUG USAGE PROCESS [None]
